FAERS Safety Report 7105070-8 (Version None)
Quarter: 2010Q4

REPORT INFORMATION
  Report Type: 
  Country: None (occurrence: None)
  Receive Date: 20101116
  Receipt Date: 20101105
  Transmission Date: 20110411
  Serious: Yes (Other)
  Sender: FDA-Public Use
  Company Number: US-NOVOPROD-315033

PATIENT
  Age: 40 Year
  Sex: Male
  Weight: 69.615 kg

DRUGS (6)
  1. VICTOZA [Suspect]
     Indication: LATENT AUTOIMMUNE DIABETES IN ADULTS
     Dosage: 1.2 MG, QD
     Route: 058
     Dates: start: 20100601, end: 20100901
  2. ACTOS [Concomitant]
     Dosage: 30 MG, QD
  3. GLIMEPIRIDE [Concomitant]
     Dosage: 2 MG, QD
  4. SIMVASTATIN [Concomitant]
     Dosage: 20 MG, QD
  5. VITAMIN D3 [Concomitant]
     Dosage: 1000 UNK, QD
  6. RANITIDINE [Concomitant]
     Dosage: 75 MG, QD

REACTIONS (2)
  - PANCREATITIS [None]
  - WEIGHT DECREASED [None]
